FAERS Safety Report 8215950-8 (Version None)
Quarter: 2012Q1

REPORT INFORMATION
  Report Type: 
  Country: None (occurrence: None)
  Receive Date: 20120316
  Receipt Date: 20120307
  Transmission Date: 20120608
  Serious: Yes (Other)
  Sender: FDA-Public Use
  Company Number: DE-COVIDIEN/TYCO HEALTHCARE/MALLINCKRODT-T201201027

PATIENT

DRUGS (6)
  1. METOPROLOL TARTRATE [Concomitant]
  2. TECHNETIUM TC99M SESTAMIBI [Suspect]
     Indication: SCAN MYOCARDIAL PERFUSION
     Dosage: UNK, SINGLE
     Dates: start: 20120305, end: 20120305
  3. KATADOLON                          /00890102/ [Concomitant]
  4. TECHNETIUM TC 99M GENERATOR [Suspect]
     Indication: SCAN MYOCARDIAL PERFUSION
     Dosage: 498 MBQ, SINGLE
     Dates: start: 20120305, end: 20120305
  5. LEVOTHYROXINE SODIUM [Concomitant]
  6. PANTOZOL                           /01263204/ [Concomitant]

REACTIONS (5)
  - TACHYCARDIA [None]
  - COLD SWEAT [None]
  - HYPERSENSITIVITY [None]
  - ANGINA PECTORIS [None]
  - CHILLS [None]
